FAERS Safety Report 16637176 (Version 1)
Quarter: 2019Q3

REPORT INFORMATION
  Report Type: Spontaneous
  Country: CH (occurrence: CH)
  Receive Date: 20190726
  Receipt Date: 20190726
  Transmission Date: 20191004
  Serious: Yes (Hospitalization, Other)
  Sender: FDA-Public Use
  Company Number: CH-PFIZER INC-2019316489

PATIENT
  Age: 64 Year
  Sex: Female
  Weight: 86 kg

DRUGS (11)
  1. BACTRIM [Suspect]
     Active Substance: SULFAMETHOXAZOLE\TRIMETHOPRIM
     Dosage: 1200 MG, 4X/DAY
     Route: 048
     Dates: start: 20190619, end: 20190622
  2. TARGIN [Concomitant]
     Active Substance: NALOXONE HYDROCHLORIDE\OXYCODONE HYDROCHLORIDE
     Dosage: 60 MG, 2X/DAY
     Route: 048
  3. SPIRICORT [Concomitant]
     Active Substance: PREDNISOLONE
     Dosage: 60 MG, 1X/DAY
     Route: 048
     Dates: start: 20190607, end: 20190611
  4. KALCIPOS D3 [Concomitant]
     Dosage: UNK
  5. SPIRICORT [Concomitant]
     Active Substance: PREDNISOLONE
     Dosage: 25 MG, 1X/DAY
     Route: 048
  6. PREGABALIN PFIZER [Suspect]
     Active Substance: PREGABALIN
     Dosage: 75 MG, 2X/DAY
     Route: 048
     Dates: end: 20190619
  7. XGEVA [Concomitant]
     Active Substance: DENOSUMAB
     Indication: BONE DISORDER
     Dosage: 1 DF, MONTHLY
     Dates: start: 20180427
  8. BACTRIM [Suspect]
     Active Substance: SULFAMETHOXAZOLE\TRIMETHOPRIM
     Dosage: 2000 MG, 4X/DAY
     Route: 048
     Dates: start: 20190613, end: 20190619
  9. PANTOPRAZOL SANDOZ [Concomitant]
     Active Substance: PANTOPRAZOLE SODIUM
     Dosage: 40 MG, 1X/DAY
     Route: 048
  10. SPIRICORT [Concomitant]
     Active Substance: PREDNISOLONE
     Dosage: 20 MG, DAILY
     Route: 048
     Dates: start: 20190617
  11. BACTRIM [Suspect]
     Active Substance: SULFAMETHOXAZOLE\TRIMETHOPRIM
     Dosage: 2000 MG, 4X/DAY
     Route: 042
     Dates: start: 20190607, end: 20190613

REACTIONS (6)
  - Intention tremor [Recovering/Resolving]
  - Hyperkalaemia [Recovered/Resolved]
  - Hyponatraemia [Recovering/Resolving]
  - Acute kidney injury [Recovering/Resolving]
  - Electrolyte imbalance [Recovering/Resolving]
  - Ataxia [Recovering/Resolving]

NARRATIVE: CASE EVENT DATE: 20190614
